FAERS Safety Report 11911488 (Version 1)
Quarter: 2016Q1

REPORT INFORMATION
  Report Type: Spontaneous
  Country: PL (occurrence: PL)
  Receive Date: 20160112
  Receipt Date: 20160112
  Transmission Date: 20160526
  Serious: Yes (Hospitalization)
  Sender: FDA-Public Use
  Company Number: PL-TEVA-624272ISR

PATIENT
  Age: 16 Year
  Sex: Female

DRUGS (5)
  1. BLEOMYCIN [Concomitant]
     Active Substance: BLEOMYCIN SULFATE
     Indication: CERVIX CARCINOMA
     Route: 065
  2. CISPLATIN. [Suspect]
     Active Substance: CISPLATIN
     Indication: CERVIX CARCINOMA
     Route: 065
  3. VINCRISTINE [Concomitant]
     Active Substance: VINCRISTINE
     Indication: CERVIX CARCINOMA
     Route: 065
  4. DOXORUBICIN [Concomitant]
     Active Substance: DOXORUBICIN
     Indication: CERVIX CARCINOMA
     Route: 065
  5. INTERFERON [Concomitant]
     Active Substance: INTERFERON
     Indication: CERVIX CARCINOMA
     Route: 065

REACTIONS (2)
  - Chronic kidney disease [Recovering/Resolving]
  - Anaemia [Recovered/Resolved]
